FAERS Safety Report 24066599 (Version 4)
Quarter: 2024Q3

REPORT INFORMATION
  Report Type: Spontaneous
  Country: US (occurrence: US)
  Receive Date: 20240709
  Receipt Date: 20240711
  Transmission Date: 20241017
  Serious: Yes (Death)
  Sender: ROCHE
  Company Number: US-ROCHE-10000010996

PATIENT
  Sex: Male

DRUGS (1)
  1. CATHFLO ACTIVASE [Suspect]
     Active Substance: ALTEPLASE
     Indication: Metastatic neoplasm
     Route: 065

REACTIONS (2)
  - Pyrexia [Unknown]
  - Death [Fatal]
